FAERS Safety Report 7208406-2 (Version None)
Quarter: 2011Q1

REPORT INFORMATION
  Report Type: 
  Country: None (occurrence: None)
  Receive Date: 20110104
  Receipt Date: 20101230
  Transmission Date: 20110831
  Serious: Yes (Hospitalization)
  Sender: FDA-Public Use
  Company Number: PHHY2010US89409

PATIENT
  Sex: Female

DRUGS (1)
  1. LAMISIL [Suspect]
     Dosage: UNK

REACTIONS (3)
  - RASH [None]
  - LOSS OF CONSCIOUSNESS [None]
  - URTICARIA [None]
